FAERS Safety Report 6478325-8 (Version None)
Quarter: 2009Q4

REPORT INFORMATION
  Report Type: 
  Country: None (occurrence: None)
  Receive Date: 20091207
  Receipt Date: 20091203
  Transmission Date: 20100525
  Serious: No
  Sender: FDA-Public Use
  Company Number: US-ROXANE LABORATORIES, INC.-2009-RO-01229RO

PATIENT
  Age: 34 Year
  Sex: Male

DRUGS (1)
  1. PREDNISONE [Suspect]
     Indication: RENAL TRANSPLANT
     Dosage: 4 MG
     Route: 048

REACTIONS (1)
  - BONE DENSITY DECREASED [None]
